FAERS Safety Report 7698651-4 (Version None)
Quarter: 2011Q3

REPORT INFORMATION
  Report Type: 
  Country: None (occurrence: None)
  Receive Date: 20110818
  Receipt Date: 20110818
  Transmission Date: 20111222
  Serious: Yes (Hospitalization)
  Sender: FDA-Public Use
  Company Number: None

PATIENT

DRUGS (2)
  1. WARFARIN SODIUM [Suspect]
     Indication: ATRIAL FIBRILLATION
     Dosage: 5 MG PM PO
     Route: 048
     Dates: start: 20110426, end: 20110522
  2. MELOXICAM [Suspect]
     Indication: PAIN
     Dosage: 15 MG EVERY DAY PO
     Route: 048
     Dates: start: 20110203, end: 20110522

REACTIONS (5)
  - HAEMORRHOIDS [None]
  - GASTRIC HAEMORRHAGE [None]
  - COLONIC POLYP [None]
  - DIVERTICULUM [None]
  - INTERNATIONAL NORMALISED RATIO INCREASED [None]
